FAERS Safety Report 22123001 (Version 2)
Quarter: 2023Q2

REPORT INFORMATION
  Report Type: Spontaneous
  Country: US (occurrence: US)
  Receive Date: 20230322
  Receipt Date: 20230418
  Transmission Date: 20230722
  Serious: No
  Sender: FDA-Public Use
  Company Number: US-SUN PHARMACEUTICAL INDUSTRIES LTD-2023R1-381514

PATIENT
  Sex: Female

DRUGS (1)
  1. CEQUA [Suspect]
     Active Substance: CYCLOSPORINE
     Indication: Dry eye
     Dosage: 1 DOSAGE FORM, QD
     Route: 047
     Dates: start: 202210, end: 202212

REACTIONS (5)
  - Eye irritation [Unknown]
  - Eye irritation [Unknown]
  - Underdose [Unknown]
  - Therapy cessation [Unknown]
  - Ocular hyperaemia [Unknown]
